FAERS Safety Report 4579144-X (Version None)
Quarter: 2005Q1

REPORT INFORMATION
  Report Type: 
  Country: None (occurrence: None)
  Receive Date: 20050121
  Receipt Date: 20041203
  Transmission Date: 20050727
  Serious: Yes (Hospitalization)
  Sender: FDA-Public Use
  Company Number: STA-AE-04-MTX-606

PATIENT
  Age: 68 Year
  Sex: Male

DRUGS (14)
  1. METHOTREXATE [Suspect]
     Indication: RHEUMATOID ARTHRITIS
     Dosage: 7.5 MG 1X PER 1 WK, ORAL
     Route: 048
  2. ARAVA [Suspect]
     Dosage: 10 MG 1X PER 1 DAY, ORAL
     Route: 048
     Dates: start: 20020409
  3. FOLIC ACID [Concomitant]
  4. LASIX [Concomitant]
  5. SPALT ASS (ASPIRIN) [Concomitant]
  6. PREVACID [Concomitant]
  7. ATENOLOL [Concomitant]
  8. MIACALCIN [Concomitant]
  9. LANTUS [Concomitant]
  10. LEVOXYL [Concomitant]
  11. FLOMAX [Concomitant]
  12. POTASSIUM CHLORIDE [Concomitant]
  13. CALCIUM (CALCIUM) [Concomitant]
  14. ACTONEL [Concomitant]

REACTIONS (3)
  - CHRONIC OBSTRUCTIVE AIRWAYS DISEASE EXACERBATED [None]
  - COUGH [None]
  - PYREXIA [None]
